FAERS Safety Report 24557370 (Version 1)
Quarter: 2024Q4

REPORT INFORMATION
  Report Type: Spontaneous
  Country: CN (occurrence: CN)
  Receive Date: 20241028
  Receipt Date: 20241028
  Transmission Date: 20250114
  Serious: Yes (Hospitalization)
  Sender: ABBVIE
  Company Number: CN-ABBOTT-2024A-1390452

PATIENT
  Age: 48 Year
  Sex: Female
  Weight: 65 kg

DRUGS (2)
  1. FENOFIBRATE [Suspect]
     Active Substance: FENOFIBRATE
     Indication: Symptomatic treatment
     Route: 048
     Dates: start: 20240723, end: 20240812
  2. ORLISTAT [Suspect]
     Active Substance: ORLISTAT
     Indication: Symptomatic treatment
     Route: 048
     Dates: start: 20240723, end: 20240812

REACTIONS (2)
  - Urticaria [Recovering/Resolving]
  - Hepatic enzyme increased [Recovering/Resolving]

NARRATIVE: CASE EVENT DATE: 20240812
